FAERS Safety Report 9252135 (Version 1)
Quarter: 2013Q2

REPORT INFORMATION
  Report Type: Spontaneous
  Country: US (occurrence: US)
  Receive Date: 20130424
  Receipt Date: 20130424
  Transmission Date: 20140414
  Serious: No
  Sender: FDA-Public Use
  Company Number: US-PFIZER INC-2013126759

PATIENT
  Sex: Male

DRUGS (1)
  1. ADVIL [Suspect]
     Indication: JOINT INJURY
     Dosage: 3 TABLETS THREE TIMES A DAY AFTER MEALS
     Route: 048

REACTIONS (2)
  - Drug effect incomplete [Unknown]
  - Ocular hyperaemia [Unknown]
